FAERS Safety Report 9225438 (Version 2)
Quarter: 2013Q2

REPORT INFORMATION
  Report Type: Spontaneous
  Country: DE (occurrence: DE)
  Receive Date: 20130411
  Receipt Date: 20130422
  Transmission Date: 20140414
  Serious: Yes (Death)
  Sender: FDA-Public Use
  Company Number: DE-ROCHE-1211442

PATIENT
  Age: 5 Month
  Sex: Male

DRUGS (8)
  1. ACTILYSE [Suspect]
     Indication: DISSEMINATED INTRAVASCULAR COAGULATION
     Route: 040
  2. ACTILYSE [Suspect]
     Route: 040
  3. CEFOTAXIME [Concomitant]
  4. RED CELLS PACK [Concomitant]
  5. DOPAMIN [Concomitant]
  6. DOBUTAMIN [Concomitant]
  7. EPINEPHRINE [Concomitant]
  8. BICARBONATE [Concomitant]

REACTIONS (1)
  - Multi-organ failure [Fatal]
